FAERS Safety Report 21055632 (Version 3)
Quarter: 2022Q4

REPORT INFORMATION
  Report Type: Spontaneous
  Country: US (occurrence: US)
  Receive Date: 20220708
  Receipt Date: 20221018
  Transmission Date: 20230113
  Serious: Yes (Hospitalization, Other)
  Sender: FDA-Public Use
  Company Number: US-BRISTOL-MYERS SQUIBB COMPANY-2022-065159

PATIENT
  Age: 70 Year
  Sex: Female
  Weight: 83 kg

DRUGS (57)
  1. REVLIMID [Suspect]
     Active Substance: LENALIDOMIDE
     Indication: Plasma cell myeloma
     Dosage: ONCE DAILY 21 DAYS AND THEN 7 DAYS OFF?BATCH NUMBER (A3740A) AND EXPIRY DATE (31-AUG-2024)
     Route: 048
     Dates: start: 20220602
  2. REVLIMID [Suspect]
     Active Substance: LENALIDOMIDE
     Route: 048
     Dates: start: 20220603, end: 20221011
  3. ACYCLOVIR [Concomitant]
     Active Substance: ACYCLOVIR
     Indication: Product used for unknown indication
     Route: 048
  4. ADVAIR HFA [Concomitant]
     Active Substance: FLUTICASONE PROPIONATE\SALMETEROL XINAFOATE
     Indication: Product used for unknown indication
     Dosage: INHALE 2 PUFFS TWICE DAILY BY MOUTH ?230/1MCG ORAL INH 120^S
     Route: 048
  5. ALBUTEROL SULFATE [Concomitant]
     Active Substance: ALBUTEROL SULFATE
     Indication: Product used for unknown indication
     Dosage: INHALE 2 PUFFS BY MOUTH EVERY 4 TO 6 HRS AS NEEDED USE 10 TO 15 MIN BEFORE EXERCISE ?200 PUFFS (8.5G
     Route: 048
  6. ALBUTEROL [Concomitant]
     Active Substance: ALBUTEROL
     Indication: Product used for unknown indication
     Dosage: 0.083 % (2.5 MG/3ML) 60 ^ 3ML?USE 1 VIAL VA NEBULIZER EVERY 4 TO 6HR AS NEEDED
     Route: 065
  7. AMOXICILLIN [Concomitant]
     Active Substance: AMOXICILLIN
     Indication: Product used for unknown indication
     Dosage: TAKE 4 CAPSULES BY MOUTH 1 HOUR BEFORE DENTAL APPOINTEMNT
     Route: 048
  8. AZITHROMYCIN [Concomitant]
     Active Substance: AZITHROMYCIN
     Indication: Product used for unknown indication
     Dosage: TAKE 2 TABLETS BY MOUTH FOR 1 DAY THEN TAKE 1 TABLET BY MOUTH DAILY FOR 4 DAYS
     Route: 048
  9. BENZONATATE [Concomitant]
     Active Substance: BENZONATATE
     Indication: Product used for unknown indication
     Route: 048
  10. CEPHALEXIN MONOHYDRATE [Concomitant]
     Active Substance: CEPHALEXIN MONOHYDRATE
     Indication: Product used for unknown indication
     Route: 048
  11. COLESEVELAM [Concomitant]
     Active Substance: COLESEVELAM
     Indication: Product used for unknown indication
     Dosage: MIX AND DRINK 1 PACK BY MOUTH DAILY
     Route: 048
  12. COLESEVELAM [Concomitant]
     Active Substance: COLESEVELAM
     Indication: Product used for unknown indication
     Dosage: TAKE 3 TABLETS BY MOUTH TWICE DAILY WITH MEALS
     Route: 048
  13. CYCLOBENZAPRINE [Concomitant]
     Active Substance: CYCLOBENZAPRINE
     Indication: Product used for unknown indication
     Dosage: TAKE ONE TABLET BY MOUTH THREE TIMES DAILY ( 5MG TABLET)?TAKE ONE TABLET BY MOUTH THREE TIMES DAILY
     Route: 048
  14. DEXAMETHASONE [Concomitant]
     Active Substance: DEXAMETHASONE
     Indication: Product used for unknown indication
     Dosage: TAKE 5 TABLETS DAILY WITH FOOD ON DAYS 2 9 16 AND 23
     Route: 065
  15. DICLOFAN [DICLOFENAC SODIUM] [Concomitant]
     Indication: Back pain
     Dosage: APPLY TOPICALL TO THE AFFECTED AREA TWICE DAILY ,APPLY 1 GRAM TO THE TOPICALLY AFFECTED AREA  FOUR T
     Route: 061
  16. DICLOFAN [DICLOFENAC SODIUM] [Concomitant]
     Indication: Arthralgia
  17. DICLOFAN [DICLOFENAC SODIUM] [Concomitant]
     Indication: Product used for unknown indication
     Dosage: TAKE 1 TABLET BY MOUTH TWICE DAILY
     Route: 048
  18. DULOXETINE [Concomitant]
     Active Substance: DULOXETINE
     Indication: Product used for unknown indication
     Dosage: TAKE ONE CAPSULE BY MOUTH EVERY DAY
     Route: 048
  19. FM [FAMOTIDINE] [Concomitant]
     Indication: Product used for unknown indication
     Route: 048
  20. FERROUS SULPHATE ARROW [Concomitant]
     Indication: Product used for unknown indication
     Dosage: TAKE ONE TABLET BY MOUTH DAILY?324 MGEC TABS RED
     Route: 048
  21. FEXOFENADINE [Concomitant]
     Active Substance: FEXOFENADINE HYDROCHLORIDE
     Indication: Product used for unknown indication
     Dosage: TAKE ONE TABLET BY MOUTH EVERY DAY
     Route: 048
  22. FLOVENT HFA [Concomitant]
     Active Substance: FLUTICASONE PROPIONATE
     Indication: Product used for unknown indication
     Dosage: INHALE 2 PUFFS BY MOUTH TWICE DAILY
     Route: 048
  23. FLUCONAZOLE [Concomitant]
     Active Substance: FLUCONAZOLE
     Indication: Product used for unknown indication
     Dosage: FOR 7 DAYS
     Route: 048
  24. FLUTICASONE PROPIONATE [Concomitant]
     Active Substance: FLUTICASONE PROPIONATE
     Indication: Product used for unknown indication
     Dosage: USE 2 SPRAYS IN EACH NOSTRIL ONCE DAILY AS INSTRUCTED?50MCH NASAL SP (120)RX
  25. FLUCONAZOLE [Concomitant]
     Active Substance: FLUCONAZOLE
     Indication: Product used for unknown indication
     Dosage: ADMINISTERS 0.7ML IN MUSCLE  AS DIRECTED TODAY?65+PF 2021 -22INJ 0.7ML
  26. GABAPENTIN [Concomitant]
     Active Substance: GABAPENTIN
     Indication: Product used for unknown indication
     Route: 048
  27. ACETAMINOPHEN\HYDROCODONE [Concomitant]
     Active Substance: ACETAMINOPHEN\HYDROCODONE
     Indication: Pain
     Dosage: TAKE  1 TABLET BY MOUTH EVERY 6 HRS  FOR UPTO 3 DAYS AS NEEDED FOR PAIN MAX DAILY AMOUNT 4 TABLET ?T
  28. HYDROXYZINE HYDROCHLORIDE [Concomitant]
     Active Substance: HYDROXYZINE HYDROCHLORIDE
     Indication: Pruritus
     Dosage: TAKE ONE TABLET BY MOUTH THREE TIMES DAILY AS NEEDED AND AT BED TIME?25MG TABLET AND 50MG TABLET
     Route: 048
  29. IPRATROPIUM BROMIDE [Concomitant]
     Active Substance: IPRATROPIUM BROMIDE
     Indication: Dyspnoea
     Dosage: INHALE VIAL VIA NEBULIZER EVERY 6HRS AS NEEDED ?0.5/3MG INH SL 60*3ML
     Route: 065
  30. LEVOX [LEVOFLOXACIN] [Concomitant]
     Indication: Product used for unknown indication
     Dosage: TAKE HALF TABLET BY MOUTH DAILY
     Route: 048
  31. LIDOCAINE [Concomitant]
     Active Substance: LIDOCAINE
     Indication: Product used for unknown indication
     Dosage: APPLY EXTERNALLY TO THE AFFECTED AREA 1 TO 4 TIMES DAILY AS NEEDED?5% TOPICAL OINTMENT 30GM
     Route: 061
  32. LIDOCAINE [Concomitant]
     Active Substance: LIDOCAINE
     Dosage: TAKE 15 ML BY MOUTH AS NEEDED FOR PAIN FOR 4 DOSES
     Route: 061
  33. HYDROCHLOROTHIAZIDE\LISINOPRIL [Concomitant]
     Active Substance: HYDROCHLOROTHIAZIDE\LISINOPRIL
     Indication: Product used for unknown indication
     Dosage: 20/12.5MG TABLET TAKE ONE TABLET BY MOUTH TWICE DAILY
     Route: 048
  34. LORAZEPAM [Concomitant]
     Active Substance: LORAZEPAM
     Indication: Product used for unknown indication
     Dosage: TAKE ONE TABLET BY MOUTH ONCE 30MIN BEFORE MRI REPEAT ONCE AS NEEDED?TAKE ONE TABLET BY MOUTH TWICE
     Route: 048
  35. MECLIZINE [Concomitant]
     Active Substance: MECLIZINE HYDROCHLORIDE
     Indication: Product used for unknown indication
     Dosage: FOR 7 DAYS
     Route: 048
  36. METHYLPREDNISOLONE [Concomitant]
     Active Substance: METHYLPREDNISOLONE
     Indication: Product used for unknown indication
     Dosage: 4MG DOSPACK 21S
     Route: 065
  37. METOPROLOL SUCCINATE [Concomitant]
     Active Substance: METOPROLOL SUCCINATE
     Indication: Product used for unknown indication
     Route: 048
  38. MIRTAZAPINE [Concomitant]
     Active Substance: MIRTAZAPINE
     Indication: Product used for unknown indication
     Dosage: ONE TABLET BY MOUTH DAILY ONCE AND DAILY TWICE AND 10MG TABLET ONE TIME A DAY
     Route: 048
  39. MONTELUKAST SODIUM [Concomitant]
     Active Substance: MONTELUKAST SODIUM
     Indication: Product used for unknown indication
     Route: 048
  40. NABUMETONE [Concomitant]
     Active Substance: NABUMETONE
     Indication: Product used for unknown indication
     Route: 048
  41. NITROFURANTOIN MONOHYDRATE MACROCRYSTALS [Concomitant]
     Active Substance: NITROFURANTOIN\NITROFURANTOIN MONOHYDRATE
     Indication: Product used for unknown indication
     Route: 048
  42. OMEPRAZOLE [Concomitant]
     Active Substance: OMEPRAZOLE
     Indication: Product used for unknown indication
     Dosage: TAKE ONE CAPSULE BY MOUTH DAILY EVERY DAY BEFORE BREAKFAST?20MG AND 40MG
     Route: 048
  43. ONDANSETRON HYDROCHLORIDE [Concomitant]
     Active Substance: ONDANSETRON HYDROCHLORIDE
     Indication: Nausea
     Dosage: 8 MG AND 4 MG TABLET?TAKE ONE TABLET MY  MOUTH EVERY 8HRS AS NEEDED AND DISSOLVED 1 TABLET ON TONGUE
     Route: 048
  44. ONDANSETRON HYDROCHLORIDE [Concomitant]
     Active Substance: ONDANSETRON HYDROCHLORIDE
     Indication: Vomiting
  45. PANTOPRAZOLE SODIUM [Concomitant]
     Active Substance: PANTOPRAZOLE SODIUM
     Indication: Product used for unknown indication
     Route: 048
  46. PREDNISONE [Concomitant]
     Active Substance: PREDNISONE
     Indication: Product used for unknown indication
     Dosage: TAKE 2  TABLETS BY MOUTH DAILY (2 DAYS)  AND 3 TABLETS BY MOUTH DAILY
     Route: 048
  47. PREGABALIN [Concomitant]
     Active Substance: PREGABALIN
     Indication: Product used for unknown indication
     Dosage: TAKE ONE CAPSULE BY MOUTH THREE TIMES DAILY
     Route: 048
  48. PREVIDENT 5000 PLUS SPEARMINT [Concomitant]
     Active Substance: SODIUM FLUORIDE
     Indication: Product used for unknown indication
     Dosage: BRUSH WITH PEA SIZED AMOUNT FOR 2 TO 3 MIN TWICE DAILY SPIT OUT AFTER DO NOT RINSE OR DRINK FOR 30MI
     Route: 065
  49. PROAIR RESPICLICK [Concomitant]
     Active Substance: ALBUTEROL SULFATE
     Indication: Wheezing
     Dosage: INHALE 2 PUFFS BY MOUTH EVERY 4HRS AS NEEDED
  50. PROMETHAZINE [Concomitant]
     Active Substance: PROMETHAZINE HYDROCHLORIDE
     Indication: Cough
     Dosage: AS NEEDED
     Route: 048
  51. SULFAMETHOXAZOLE\TRIMETHOPRIM [Concomitant]
     Active Substance: SULFAMETHOXAZOLE\TRIMETHOPRIM
     Indication: Product used for unknown indication
     Dosage: TAKE 1 TABLET BY MOUTH TWICE DAILY?800/160MG TB
     Route: 048
  52. TIZANIDINE [Concomitant]
     Active Substance: TIZANIDINE
     Indication: Product used for unknown indication
     Route: 048
  53. ASPIRIN [Concomitant]
     Active Substance: ASPIRIN
     Indication: Product used for unknown indication
     Route: 065
  54. VITAMINS NOS [Concomitant]
     Active Substance: VITAMINS
     Indication: Product used for unknown indication
     Route: 065
  55. ASPIRIN [Concomitant]
     Active Substance: ASPIRIN
  56. TRAZODONE [Concomitant]
     Active Substance: TRAZODONE HYDROCHLORIDE
  57. VITAMINS [Concomitant]
     Active Substance: VITAMINS

REACTIONS (5)
  - Abdominal pain upper [Unknown]
  - Myocardial infarction [Unknown]
  - Dehydration [Unknown]
  - Oral pain [Unknown]
  - Muscle spasms [Unknown]

NARRATIVE: CASE EVENT DATE: 20220901
